FAERS Safety Report 7293449-3 (Version None)
Quarter: 2011Q1

REPORT INFORMATION
  Report Type: 
  Country: None (occurrence: None)
  Receive Date: 20110204
  Receipt Date: 20110120
  Transmission Date: 20110831
  Serious: Yes (Other)
  Sender: FDA-Public Use
  Company Number: 025965

PATIENT
  Sex: Male
  Weight: 68.0396 kg

DRUGS (7)
  1. LACOSAMIDE [Suspect]
     Indication: CONVULSION
     Dosage: (100 MG BID ORAL)
     Route: 048
     Dates: start: 20101205
  2. ASPIRIN /0002701/ [Concomitant]
  3. PLAVIX [Concomitant]
  4. TRICOR [Concomitant]
  5. COREG [Concomitant]
  6. PROTONIX [Concomitant]
  7. LOVAZA [Concomitant]

REACTIONS (3)
  - IRRITABILITY [None]
  - SPINAL FRACTURE [None]
  - FALL [None]
